FAERS Safety Report 8263770-0 (Version None)
Quarter: 2012Q2

REPORT INFORMATION
  Report Type: 
  Country: None (occurrence: None)
  Receive Date: 20120405
  Receipt Date: 20120322
  Transmission Date: 20120825
  Serious: Yes (Death, Hospitalization)
  Sender: FDA-Public Use
  Company Number: US-RANBAXY-2012US-54319

PATIENT
  Age: 18 Year
  Sex: Male

DRUGS (1)
  1. LORATADINE [Suspect]
     Indication: PRODUCT USED FOR UNKNOWN INDICATION
     Dosage: 120 TABLETS
     Route: 048

REACTIONS (5)
  - CONVULSION [None]
  - BLOOD PH DECREASED [None]
  - HYPERTHERMIA [None]
  - PULMONARY OEDEMA [None]
  - COMPLETED SUICIDE [None]
